FAERS Safety Report 11445625 (Version 2)
Quarter: 2016Q2

REPORT INFORMATION
  Report Type: Report from Study
  Country: JP (occurrence: JP)
  Receive Date: 20150902
  Receipt Date: 20160428
  Transmission Date: 20160815
  Serious: Yes (Hospitalization, Other)
  Sender: FDA-Public Use
  Company Number: JP-BRISTOL-MYERS SQUIBB COMPANY-BMS-2015-058228

PATIENT
  Age: 89 Year
  Sex: Female
  Weight: 40 kg

DRUGS (9)
  1. APIXABAN [Suspect]
     Active Substance: APIXABAN
     Indication: CEREBROVASCULAR ACCIDENT PROPHYLAXIS
     Dosage: 2.5 MG, BID
     Route: 048
     Dates: start: 20140507
  2. MAINTATE [Suspect]
     Active Substance: BISOPROLOL FUMARATE
     Dosage: 2.5 MG, UNK
     Route: 048
     Dates: start: 20150513, end: 20160408
  3. ALDACTONE-A [Concomitant]
     Active Substance: SPIRONOLACTONE
     Indication: HYPERTENSION
     Dosage: 25 MG, QD
     Route: 048
     Dates: start: 20140507, end: 20150225
  4. MAINTATE [Suspect]
     Active Substance: BISOPROLOL FUMARATE
     Indication: PRODUCT USED FOR UNKNOWN INDICATION
     Dosage: 1.25 MG, UNK
     Route: 048
     Dates: start: 20140507, end: 20150507
  5. MAINTATE [Suspect]
     Active Substance: BISOPROLOL FUMARATE
     Dosage: 1.875 MG, UNK
     Route: 048
     Dates: start: 20150508, end: 20150512
  6. ENALAPRILMALEAAT [Concomitant]
     Indication: HYPERTENSION
     Dosage: 5 MG, QD
     Route: 048
  7. AMLODIPINE [Concomitant]
     Active Substance: AMLODIPINE BESYLATE
     Indication: HYPERTENSION
     Dosage: 2.5 MG, QD
     Route: 048
  8. LASIX [Concomitant]
     Active Substance: FUROSEMIDE
     Indication: HYPERTENSION
     Dosage: 20 MG, QD
     Route: 048
     Dates: start: 20140507, end: 20150225
  9. ALDACTONE-A [Concomitant]
     Active Substance: SPIRONOLACTONE
     Dosage: UNK
     Route: 048
     Dates: start: 20150513

REACTIONS (5)
  - Atrioventricular block first degree [Unknown]
  - Atrial fibrillation [Recovered/Resolved]
  - Sinus arrhythmia [Recovered/Resolved]
  - Left ventricular hypertrophy [Unknown]
  - Sinus node dysfunction [Recovering/Resolving]

NARRATIVE: CASE EVENT DATE: 20150504
